FAERS Safety Report 19179045 (Version 1)
Quarter: 2021Q2

REPORT INFORMATION
  Report Type: Spontaneous
  Country: US (occurrence: US)
  Receive Date: 20210423
  Receipt Date: 20210423
  Transmission Date: 20210717
  Serious: Yes (Other)
  Sender: FDA-Public Use
  Company Number: None

PATIENT
  Age: 73 Year
  Sex: Female
  Weight: 47.17 kg

DRUGS (1)
  1. CAPECITABINE 500MG [Suspect]
     Active Substance: CAPECITABINE
     Indication: COLORECTAL CANCER
     Route: 048
     Dates: start: 20201030, end: 20210304

REACTIONS (8)
  - Hyperaesthesia [None]
  - Pruritus [None]
  - Palmar-plantar erythrodysaesthesia syndrome [None]
  - Rash erythematous [None]
  - Pain in extremity [None]
  - Skin discolouration [None]
  - Gait inability [None]
  - Wheelchair user [None]

NARRATIVE: CASE EVENT DATE: 20201101
